FAERS Safety Report 9973805 (Version 1)
Quarter: 2014Q1

REPORT INFORMATION
  Report Type: Spontaneous
  Country: US (occurrence: US)
  Receive Date: 20140306
  Receipt Date: 20140306
  Transmission Date: 20141002
  Serious: Yes (Death)
  Sender: FDA-Public Use
  Company Number: US-TEVA-466106USA

PATIENT
  Sex: Female
  Weight: 56 kg

DRUGS (17)
  1. ACTIQ [Suspect]
     Indication: PRODUCT USED FOR UNKNOWN INDICATION
  2. TYLENOL [Concomitant]
     Indication: PYREXIA
     Dosage: AS NEEDED
  3. TYLENOL [Concomitant]
     Indication: PAIN
  4. ALBUTEROL [Concomitant]
     Indication: DYSPNOEA
     Dosage: EVERY 4 HOURS AS NEEDED
  5. ANASTROZOLE [Concomitant]
     Dosage: 1 MILLIGRAM DAILY;
     Route: 048
  6. CETIRIZINE [Concomitant]
     Dosage: 30 MILLIGRAM DAILY;
     Route: 048
  7. CLONAZEPAM [Concomitant]
     Dosage: 1.5 MILLIGRAM DAILY;
     Route: 048
  8. SENNA-S [Concomitant]
     Route: 048
  9. HYDROXYZINE [Concomitant]
     Dosage: 25 MILLIGRAM DAILY;
     Route: 048
  10. HUMALOG [Concomitant]
     Dosage: SLIDING SCALE
  11. LACTULOSE [Concomitant]
     Indication: CONSTIPATION
     Dosage: 30 MILLIGRAM DAILY;
     Route: 048
  12. LIDODERM [Concomitant]
     Dosage: 1-2 PATCHES DAILY
     Route: 061
  13. MILK OF MAGNESIA [Concomitant]
     Indication: CONSTIPATION
     Dosage: 60 MILLIGRAM DAILY;
     Route: 048
  14. NAPROXEN [Concomitant]
     Dosage: 1000 MILLIGRAM DAILY;
     Route: 048
  15. OXYCODONE [Concomitant]
     Dosage: EVERY 4 HOURS AS NEEDED
     Route: 048
  16. OXYCONTIN [Concomitant]
     Dosage: 3 TABS EVERY 8 HOURS
     Route: 048
  17. MIRALAX [Concomitant]
     Dosage: 34 GRAM DAILY;
     Route: 048

REACTIONS (1)
  - Breast cancer metastatic [Fatal]
